FAERS Safety Report 18642823 (Version 1)
Quarter: 2020Q4

REPORT INFORMATION
  Report Type: Report from Study
  Country: US (occurrence: US)
  Receive Date: 20201221
  Receipt Date: 20201221
  Transmission Date: 20210114
  Serious: Yes (Hospitalization, Other)
  Sender: FDA-Public Use
  Company Number: US-EMD SERONO-E2B_90018756

PATIENT
  Age: 67 Year
  Sex: Female

DRUGS (1)
  1. REBIF [Suspect]
     Active Substance: INTERFERON BETA-1A
     Indication: MULTIPLE SCLEROSIS
     Dosage: BATCH NUMBER; AU029456; AU029957
     Route: 058
     Dates: start: 20171030

REACTIONS (33)
  - Appendicectomy [Unknown]
  - Injection site swelling [Recovering/Resolving]
  - Extrasystoles [Unknown]
  - Parosmia [Unknown]
  - Gastritis [Recovering/Resolving]
  - Abdominal discomfort [Unknown]
  - Back pain [Unknown]
  - Weight increased [Recovering/Resolving]
  - Flatulence [Unknown]
  - Skin striae [Unknown]
  - Pain [Unknown]
  - Haematochezia [Unknown]
  - Hypersensitivity [Not Recovered/Not Resolved]
  - Sinusitis [Unknown]
  - Discomfort [Not Recovered/Not Resolved]
  - Glycosylated haemoglobin increased [Unknown]
  - Gastrointestinal motility disorder [Recovering/Resolving]
  - Paraesthesia [Unknown]
  - Oropharyngeal pain [Unknown]
  - Vomiting [Unknown]
  - Abdominal pain lower [Unknown]
  - Injection site erythema [Recovering/Resolving]
  - Mitral valve prolapse [Not Recovered/Not Resolved]
  - Urinary tract infection [Recovered/Resolved]
  - Pain in extremity [Not Recovered/Not Resolved]
  - Heart rate increased [Unknown]
  - Hepatic steatosis [Recovering/Resolving]
  - Injection site pain [Recovering/Resolving]
  - Dysphonia [Not Recovered/Not Resolved]
  - Overweight [Not Recovered/Not Resolved]
  - Nasopharyngitis [Not Recovered/Not Resolved]
  - Nausea [Unknown]
  - Hypoaesthesia [Unknown]

NARRATIVE: CASE EVENT DATE: 201804
